FAERS Safety Report 5144649-X (Version None)
Quarter: 2006Q4

REPORT INFORMATION
  Report Type: 
  Country: None (occurrence: None)
  Receive Date: 20061031
  Receipt Date: 20061019
  Transmission Date: 20070319
  Serious: Yes (Hospitalization)
  Sender: FDA-Public Use
  Company Number: 231707

PATIENT
  Age: 57 Year
  Sex: Male

DRUGS (3)
  1. AVASTIN [Suspect]
     Indication: COLON CANCER METASTATIC
     Dosage: 975 MG, Q3W, INTRAVENOUS
     Route: 042
     Dates: start: 20060928
  2. XELODA [Suspect]
     Indication: COLORECTAL CANCER METASTATIC
     Dosage: 4400 MG, UNK, ORAL
     Route: 048
     Dates: start: 20060928
  3. MITOMYCIN [Suspect]
     Indication: COLORECTAL CANCER METASTATIC
     Dosage: UNK, UNK, UNK

REACTIONS (1)
  - PARTIAL SEIZURES [None]
